FAERS Safety Report 14578953 (Version 1)
Quarter: 2018Q1

REPORT INFORMATION
  Report Type: Spontaneous
  Country: US (occurrence: US)
  Receive Date: 20180227
  Receipt Date: 20180227
  Transmission Date: 20180509
  Serious: Yes (Hospitalization)
  Sender: FDA-Public Use
  Company Number: US-OTSUKA-DJ20070654

PATIENT

DRUGS (4)
  1. CATAPRES [Concomitant]
     Active Substance: CLONIDINE HYDROCHLORIDE
     Route: 065
  2. ABILIFY [Suspect]
     Active Substance: ARIPIPRAZOLE
     Route: 065
     Dates: start: 20070323
  3. BETA BLOCKER [Concomitant]
     Active Substance: UNSPECIFIED INGREDIENT
     Route: 065
  4. ACE INHIBITOR [Concomitant]
     Active Substance: UNSPECIFIED INGREDIENT
     Route: 065

REACTIONS (2)
  - Asthenia [Unknown]
  - Urinary incontinence [Unknown]
